FAERS Safety Report 9105644 (Version 1)
Quarter: 2013Q1

REPORT INFORMATION
  Report Type: Spontaneous
  Country: US (occurrence: US)
  Receive Date: 20130220
  Receipt Date: 20130220
  Transmission Date: 20140127
  Serious: Yes (Death)
  Sender: FDA-Public Use
  Company Number: PHEH2013US004211

PATIENT
  Age: 20 Year
  Sex: Female

DRUGS (17)
  1. TOBI [Suspect]
     Dosage: 1 DF, BID
  2. ZANTAC [Concomitant]
     Dosage: 150 MG, UNK
  3. PREVACID [Concomitant]
     Dosage: 30 MG, UNK
  4. ZITHROMAX [Concomitant]
     Dosage: 500 MG, UNK
  5. REGLAN                                  /USA/ [Concomitant]
     Dosage: 5 MG, UNK
  6. FERROUS SULFATE [Concomitant]
     Dosage: 325 MG, UNK
  7. TUMS [Concomitant]
     Dosage: 500 MG, UNK
  8. PROZAC [Concomitant]
     Dosage: 10 MG, UNK
  9. ADEKS [Concomitant]
     Dosage: UNK UKN, UNK
  10. PEPTAMEN [Concomitant]
     Dosage: 1.5 UKN, UNK
  11. HUMALOG [Concomitant]
     Dosage: 100 ML, UNK
  12. NASONEX [Concomitant]
     Dosage: 50 UG, UNK
  13. NOVOLIN N [Concomitant]
     Dosage: UNK UKN, UNK
  14. ALBUTEROL [Concomitant]
     Dosage: UNK UKN, UNK
  15. PULMOZYME [Concomitant]
     Dosage: 1 MG/ 1 ML
  16. MINOCYCLINE [Concomitant]
     Dosage: 50 MG, UNK
  17. LEVAQUIN [Concomitant]
     Dosage: 250 MG, UNK

REACTIONS (1)
  - Death [Fatal]
